FAERS Safety Report 6633414-X (Version None)
Quarter: 2010Q1

REPORT INFORMATION
  Report Type: 
  Country: None (occurrence: None)
  Receive Date: 20100312
  Receipt Date: 20090311
  Transmission Date: 20100710
  Serious: No
  Sender: FDA-Public Use
  Company Number: US-ABBOTT-08P-163-0471931-00

PATIENT
  Sex: Female
  Weight: 76.272 kg

DRUGS (1)
  1. ERYTHROMYCIN BASE [Suspect]
     Indication: BRONCHITIS
     Route: 048

REACTIONS (3)
  - DYSPNOEA [None]
  - NAUSEA [None]
  - RASH [None]
